FAERS Safety Report 6832115-2 (Version None)
Quarter: 2010Q3

REPORT INFORMATION
  Report Type: 
  Country: None (occurrence: None)
  Receive Date: 20100712
  Receipt Date: 20100628
  Transmission Date: 20110219
  Serious: Yes (Life-Threatening, Hospitalization)
  Sender: FDA-Public Use
  Company Number: GB-AMGEN-US219707

PATIENT
  Sex: Female
  Weight: 56 kg

DRUGS (7)
  1. ENBREL [Suspect]
     Indication: PRODUCT USED FOR UNKNOWN INDICATION
     Route: 058
     Dates: start: 20051219, end: 20060730
  2. ENBREL [Suspect]
     Route: 058
     Dates: start: 20061201, end: 20070313
  3. DICLOFENAC SODIUM [Concomitant]
     Dosage: UNKNOWN
  4. TRAMADOL [Concomitant]
     Indication: ANALGESIC THERAPY
     Dosage: AS REQUIERED
     Route: 048
  5. SULFASALAZINE [Concomitant]
     Dosage: UNKNOWN
  6. METHOTREXATE [Concomitant]
     Indication: RHEUMATOID ARTHRITIS
     Dosage: 10 MG WEEKLY
     Route: 048
     Dates: start: 20061010
  7. ACETAMINOPHEN AND CODEINE PHOSPHATE [Concomitant]
     Indication: ANALGESIC THERAPY
     Dosage: AS REQUIRED
     Route: 048

REACTIONS (3)
  - PERICARDIAL EFFUSION [None]
  - PERICARDITIS [None]
  - PYREXIA [None]
